FAERS Safety Report 10452222 (Version 1)
Quarter: 2014Q3

REPORT INFORMATION
  Report Type: Spontaneous
  Country: US (occurrence: US)
  Receive Date: 20140915
  Receipt Date: 20140915
  Transmission Date: 20150326
  Serious: Yes (Hospitalization, Other)
  Sender: FDA-Public Use
  Company Number: PHEH2014US017687

PATIENT
  Sex: Female

DRUGS (2)
  1. TASIGNA [Suspect]
     Active Substance: NILOTINIB
  2. GLEEVEC [Suspect]
     Active Substance: IMATINIB MESYLATE
     Dosage: 400 MG, TWO TIMES PER DAY

REACTIONS (11)
  - Carbohydrate antigen 125 increased [Unknown]
  - Weight decreased [Unknown]
  - Loss of consciousness [Unknown]
  - Electrocardiogram QT prolonged [Unknown]
  - Weight increased [Unknown]
  - Palpitations [Unknown]
  - Coma [Unknown]
  - Blood potassium decreased [Unknown]
  - Pollakiuria [Unknown]
  - Vomiting [Unknown]
  - Fluid retention [Unknown]
